FAERS Safety Report 13780785 (Version 1)
Quarter: 2017Q3

REPORT INFORMATION
  Report Type: Spontaneous
  Country: US (occurrence: US)
  Receive Date: 20170721
  Receipt Date: 20170721
  Transmission Date: 20171127
  Serious: Yes (Life-Threatening, Disabling)
  Sender: FDA-Public Use
  Company Number: None

PATIENT
  Age: 16 Day
  Sex: Male
  Weight: 2 kg

DRUGS (2)
  1. DIAZOXIDE [Suspect]
     Active Substance: DIAZOXIDE
     Indication: HYPOGLYCAEMIA
     Dosage: ?          OTHER DOSE:MG;?
     Route: 048
     Dates: start: 20170710, end: 20170716
  2. PROGLYCEM [Concomitant]
     Active Substance: DIAZOXIDE

REACTIONS (1)
  - Necrotising colitis [None]

NARRATIVE: CASE EVENT DATE: 20170717
